FAERS Safety Report 6600914-8 (Version None)
Quarter: 2010Q1

REPORT INFORMATION
  Report Type: 
  Country: None (occurrence: None)
  Receive Date: 20100224
  Receipt Date: 20100224
  Transmission Date: 20100710
  Serious: Yes (Other)
  Sender: FDA-Public Use
  Company Number: None

PATIENT
  Age: 81 Year
  Sex: Female
  Weight: 61.6892 kg

DRUGS (2)
  1. IPRATROPIUM BROMIDE [Suspect]
     Indication: COUGH
     Dosage: 2 SPRAYS .03% EA NOSTRIL 21 MCG 2 X A DAY
     Dates: start: 20091229, end: 20100104
  2. IPRATROPIUM BROMIDE [Suspect]
     Indication: SNEEZING
     Dosage: 2 SPRAYS .03% EA NOSTRIL 21 MCG 2 X A DAY
     Dates: start: 20091229, end: 20100104

REACTIONS (2)
  - EYE PAIN [None]
  - FOREIGN BODY SENSATION IN EYES [None]
